FAERS Safety Report 17164913 (Version 1)
Quarter: 2019Q4

REPORT INFORMATION
  Report Type: Report from Study
  Country: US (occurrence: US)
  Receive Date: 20191217
  Receipt Date: 20191217
  Transmission Date: 20200122
  Serious: Yes (Death, Other)
  Sender: FDA-Public Use
  Company Number: US-GLAXOSMITHKLINE-US2019TSO177547

PATIENT
  Sex: Female
  Weight: 64 kg

DRUGS (5)
  1. NIRAPARIB [Suspect]
     Active Substance: NIRAPARIB
     Indication: OVARIAN CANCER
     Dosage: 200 MG, QPM WITH DINNER
     Route: 065
     Dates: start: 20190917
  2. NIRAPARIB [Suspect]
     Active Substance: NIRAPARIB
     Dosage: 200 MG, QPM WITH DINNER
     Route: 065
  3. COMPAZINE [Suspect]
     Active Substance: PROCHLORPERAZINE MALEATE
     Indication: NAUSEA
  4. NIRAPARIB [Suspect]
     Active Substance: NIRAPARIB
     Dosage: 200 MG, QPM WITH DINNER
     Route: 065
  5. LOSARTAN. [Concomitant]
     Active Substance: LOSARTAN
     Indication: PRODUCT USED FOR UNKNOWN INDICATION

REACTIONS (9)
  - Fatigue [Not Recovered/Not Resolved]
  - Hypertension [Unknown]
  - Constipation [Recovered/Resolved]
  - Oedema peripheral [Unknown]
  - Decreased appetite [Unknown]
  - Intra-abdominal fluid collection [Unknown]
  - Abdominal discomfort [Recovered/Resolved]
  - Death [Fatal]
  - Nausea [Not Recovered/Not Resolved]
